FAERS Safety Report 5551599-3 (Version None)
Quarter: 2007Q4

REPORT INFORMATION
  Report Type: 
  Country: None (occurrence: None)
  Receive Date: 20071128
  Receipt Date: 20070926
  Transmission Date: 20080405
  Serious: Yes (Hospitalization, Other)
  Sender: FDA-Public Use
  Company Number: 2007054907

PATIENT
  Age: 54 Year
  Sex: Male
  Weight: 179.2 kg

DRUGS (18)
  1. LIPITOR [Suspect]
     Indication: BLOOD CHOLESTEROL INCREASED
     Dosage: 80 MG (80 MG, 1 IN 1 D)
  2. LASIX [Concomitant]
  3. LNATUS (INSULIN GLARGINE) [Concomitant]
  4. IRON (IRON) [Concomitant]
  5. GLIPIZIDE [Concomitant]
  6. VICODIN [Concomitant]
  7. ATACAND [Concomitant]
  8. COLACE (DOCUSATE SODIUM) [Concomitant]
  9. BACLOFEN [Concomitant]
  10. XOPENEX [Concomitant]
  11. GABAPENTIN [Concomitant]
  12. NORVASC [Concomitant]
  13. ACETYLSALICYLIC ACID SRT [Concomitant]
  14. TRICOR [Concomitant]
  15. ATENOLOL [Concomitant]
  16. DOXAZOSIN MESYLATE [Concomitant]
  17. PREVACID [Concomitant]
  18. AVANDIA [Concomitant]

REACTIONS (2)
  - BLOOD CREATINE PHOSPHOKINASE INCREASED [None]
  - PNEUMONIA [None]
